FAERS Safety Report 12866964 (Version 1)
Quarter: 2016Q4

REPORT INFORMATION
  Report Type: Spontaneous
  Country: US (occurrence: US)
  Receive Date: 20161020
  Receipt Date: 20161020
  Transmission Date: 20170207
  Serious: No
  Sender: FDA-Public Use
  Company Number: US-JAZZ-2016-US-014346

PATIENT
  Sex: Female

DRUGS (17)
  1. XYREM [Suspect]
     Active Substance: SODIUM OXYBATE
     Indication: CHRONIC FATIGUE SYNDROME
     Dosage: 2.25 G, BID
     Route: 048
     Dates: start: 201209, end: 201209
  2. VITAMIN D [Concomitant]
     Active Substance: CHOLECALCIFEROL
  3. MULTIVITAMINS WITH IRON [Concomitant]
     Active Substance: IRON\VITAMINS
  4. LIOTHYRONINE SODIUM. [Concomitant]
     Active Substance: LIOTHYRONINE SODIUM
  5. CALCIUM +D [Concomitant]
     Active Substance: CALCIUM\VITAMIN D
  6. ADRENAL [Concomitant]
     Active Substance: EPINEPHRINE
  7. PROGESTERONE. [Concomitant]
     Active Substance: PROGESTERONE
  8. XYREM [Suspect]
     Active Substance: SODIUM OXYBATE
     Dosage: DOSE ADJUSTMENTS
     Route: 048
     Dates: start: 201209, end: 2012
  9. ESTRIOL [Concomitant]
     Active Substance: ESTRIOL
  10. LEXAPRO [Concomitant]
     Active Substance: ESCITALOPRAM OXALATE
  11. LORAZEPAM. [Concomitant]
     Active Substance: LORAZEPAM
  12. XYREM [Suspect]
     Active Substance: SODIUM OXYBATE
     Dosage: 4.5 G, BID
     Route: 048
     Dates: start: 2012
  13. FISH OIL EC [Concomitant]
  14. SEROTONIN HCL [Concomitant]
  15. ZOLPIDEM TARTRATE. [Concomitant]
     Active Substance: ZOLPIDEM TARTRATE
  16. SERMORELIN ACETATE. [Concomitant]
     Active Substance: SERMORELIN ACETATE
  17. TRAZODONE [Concomitant]
     Active Substance: TRAZODONE HYDROCHLORIDE

REACTIONS (1)
  - Osteopenia [Not Recovered/Not Resolved]
